FAERS Safety Report 7164480-3 (Version None)
Quarter: 2010Q4

REPORT INFORMATION
  Report Type: 
  Country: None (occurrence: None)
  Receive Date: 20101215
  Receipt Date: 20101202
  Transmission Date: 20110411
  Serious: Yes (Hospitalization, Other)
  Sender: FDA-Public Use
  Company Number: PHHO2010AU12598

PATIENT
  Sex: Female

DRUGS (3)
  1. ZOLEDRONATE T29581+ [Suspect]
     Indication: METASTASES TO BONE
     Dosage: 4 MG EVERY 21 DAYS
     Route: 042
     Dates: end: 20100820
  2. AFINITOR [Suspect]
     Indication: BREAST CANCER
     Dosage: 10 MG, QD
     Route: 048
     Dates: start: 20100729
  3. LESCOL [Suspect]

REACTIONS (6)
  - CATHETERISATION VENOUS [None]
  - INSTILLATION SITE PAIN [None]
  - LOWER RESPIRATORY TRACT INFECTION [None]
  - MALIGNANT NEOPLASM PROGRESSION [None]
  - POOR VENOUS ACCESS [None]
  - PYREXIA [None]
